FAERS Safety Report 11802614 (Version 1)
Quarter: 2015Q4

REPORT INFORMATION
  Report Type: Spontaneous
  Country: US (occurrence: US)
  Receive Date: 20151204
  Receipt Date: 20151204
  Transmission Date: 20160305
  Serious: No
  Sender: FDA-Public Use
  Company Number: US-MYLANLABS-2015M1032668

PATIENT
  Sex: Female

DRUGS (2)
  1. LIDOCAINE PATCH [Suspect]
     Active Substance: LIDOCAINE
     Indication: OFF LABEL USE
  2. LIDOCAINE PATCH [Suspect]
     Active Substance: LIDOCAINE
     Indication: ROTATOR CUFF SYNDROME
     Dosage: APPLY UPTO 12 HOURS IN A 24 HOUR PERIOD
     Route: 003
     Dates: start: 20150917, end: 20150920

REACTIONS (3)
  - Product quality issue [Recovered/Resolved]
  - Application site laceration [Recovered/Resolved]
  - Product adhesion issue [Recovered/Resolved]

NARRATIVE: CASE EVENT DATE: 20150917
